FAERS Safety Report 15043862 (Version 1)
Quarter: 2018Q2

REPORT INFORMATION
  Report Type: Spontaneous
  Country: US (occurrence: US)
  Receive Date: 20180531
  Receipt Date: 20180531
  Transmission Date: 20180711
  Serious: Yes (Hospitalization)
  Sender: FDA-Public Use
  Company Number: None

PATIENT
  Age: 76 Year
  Sex: Male

DRUGS (1)
  1. CISPLATIN. [Suspect]
     Active Substance: CISPLATIN
     Indication: SQUAMOUS CELL CARCINOMA OF HEAD AND NECK
     Route: 042
     Dates: start: 20180423, end: 20180507

REACTIONS (8)
  - Haemoglobin increased [None]
  - Rash [None]
  - Oral candidiasis [None]
  - Polycythaemia [None]
  - Febrile neutropenia [None]
  - Cough [None]
  - Fatigue [None]
  - Oropharyngeal pain [None]

NARRATIVE: CASE EVENT DATE: 20180516
